FAERS Safety Report 8281082-6 (Version None)
Quarter: 2012Q2

REPORT INFORMATION
  Report Type: 
  Country: None (occurrence: None)
  Receive Date: 20120413
  Receipt Date: 20120409
  Transmission Date: 20120825
  Serious: Yes (Life-Threatening, Hospitalization, Other)
  Sender: FDA-Public Use
  Company Number: US-BRISTOL-MYERS SQUIBB COMPANY-16337131

PATIENT
  Age: 60 Year
  Sex: Female
  Weight: 69 kg

DRUGS (5)
  1. MEDROL [Suspect]
     Indication: RENAL TRANSPLANT
     Route: 048
     Dates: start: 20111227, end: 20111227
  2. LASIX [Concomitant]
     Dates: start: 20111227, end: 20111227
  3. NULOJIX [Suspect]
     Indication: RENAL TRANSPLANT
     Route: 042
     Dates: start: 20111227, end: 20111227
  4. MYCOPHENOLATE MOFETIL (CELLCEPT) [Suspect]
     Indication: RENAL TRANSPLANT
     Dosage: REG 2, 1GM BID, 29DEC-29DEC11.
     Route: 042
     Dates: start: 20111227, end: 20111229
  5. CAMPATH [Suspect]
     Indication: RENAL TRANSPLANT
     Route: 042
     Dates: start: 20111227, end: 20111227

REACTIONS (3)
  - GRAFT LOSS [None]
  - RENAL VEIN THROMBOSIS [None]
  - DISSEMINATED INTRAVASCULAR COAGULATION [None]
